FAERS Safety Report 8378419-6 (Version None)
Quarter: 2012Q2

REPORT INFORMATION
  Report Type: 
  Country: None (occurrence: None)
  Receive Date: 20120522
  Receipt Date: 20120130
  Transmission Date: 20120825
  Serious: No
  Sender: FDA-Public Use
  Company Number: US-ASTRAZENECA-2011SE70893

PATIENT
  Age: 56 Year
  Sex: Female

DRUGS (2)
  1. PRILOSEC [Suspect]
     Route: 048
  2. PRILOSEC [Suspect]
     Route: 048

REACTIONS (4)
  - CHOKING [None]
  - REACTION TO DRUG EXCIPIENTS [None]
  - ABDOMINAL DISCOMFORT [None]
  - MALAISE [None]
